FAERS Safety Report 4290313-9 (Version None)
Quarter: 2004Q1

REPORT INFORMATION
  Report Type: 
  Country: None (occurrence: None)
  Receive Date: 20040206
  Receipt Date: 20040206
  Transmission Date: 20041129
  Serious: Yes (Other)
  Sender: FDA-Public Use
  Company Number: None

PATIENT
  Age: 22 Year
  Sex: Female
  Weight: 77.1115 kg

DRUGS (1)
  1. WELLBUTRIN SR [Suspect]
     Indication: MAJOR DEPRESSION
     Dosage: ONE DAY ORAL
     Route: 048
     Dates: start: 20040126, end: 20040126

REACTIONS (1)
  - HYPERSENSITIVITY [None]
